FAERS Safety Report 8518885-6 (Version None)
Quarter: 2012Q3

REPORT INFORMATION
  Report Type: 
  Country: None (occurrence: None)
  Receive Date: 20120718
  Receipt Date: 20120716
  Transmission Date: 20120928
  Serious: Yes (Hospitalization)
  Sender: FDA-Public Use
  Company Number: IT-BAYER-2012-070893

PATIENT
  Age: 78 Year
  Sex: Female

DRUGS (1)
  1. ASPIRIN [Suspect]
     Indication: ANTICOAGULANT THERAPY
     Dosage: 100 MG, QD
     Route: 048

REACTIONS (4)
  - DYSPHORIA [None]
  - ABDOMINAL PAIN UPPER [None]
  - CEREBRAL HAEMORRHAGE [None]
  - PSYCHOMOTOR HYPERACTIVITY [None]
